FAERS Safety Report 9094468 (Version 1)
Quarter: 2013Q1

REPORT INFORMATION
  Report Type: Report from Study
  Country: JP (occurrence: JP)
  Receive Date: 20130219
  Receipt Date: 20130219
  Transmission Date: 20140127
  Serious: Yes (Hospitalization)
  Sender: FDA-Public Use
  Company Number: JP-SANOFI-AVENTIS-2013SA012802

PATIENT
  Age: 90 Year
  Sex: Male

DRUGS (1)
  1. LANTUS [Suspect]
     Indication: TYPE 2 DIABETES MELLITUS
     Route: 065

REACTIONS (4)
  - Hypoglycaemia [Unknown]
  - Coma [Unknown]
  - Coma scale abnormal [Unknown]
  - Nuclear magnetic resonance imaging abnormal [Unknown]
